FAERS Safety Report 9901391 (Version 1)
Quarter: 2014Q1

REPORT INFORMATION
  Report Type: Spontaneous
  Country: US (occurrence: US)
  Receive Date: 20140217
  Receipt Date: 20140217
  Transmission Date: 20141002
  Serious: Yes (Death)
  Sender: FDA-Public Use
  Company Number: US-PFIZER INC-2014041070

PATIENT
  Age: 44 Year
  Sex: Male

DRUGS (1)
  1. VFEND [Suspect]
     Dosage: ONE 200MG TABLET TWICE DAILY
     Dates: start: 20120820

REACTIONS (1)
  - Infection [Fatal]
